FAERS Safety Report 20986983 (Version 1)
Quarter: 2022Q2

REPORT INFORMATION
  Report Type: Report from Study
  Country: JP (occurrence: JP)
  Receive Date: 20220621
  Receipt Date: 20220621
  Transmission Date: 20220721
  Serious: Yes (Death, Other)
  Sender: FDA-Public Use
  Company Number: JP-RECORDATI RARE DISEASE INC.-2022002629

PATIENT
  Sex: Female
  Weight: .57 kg

DRUGS (12)
  1. NEOPROFEN [Suspect]
     Active Substance: IBUPROFEN LYSINE
     Indication: Patent ductus arteriosus
     Dosage: 5 MILLIGRAM
     Route: 042
     Dates: start: 20190605, end: 20190605
  2. NEOPROFEN [Suspect]
     Active Substance: IBUPROFEN LYSINE
     Dosage: 2.5 MILLIGRAM
     Route: 042
     Dates: start: 20190606, end: 20190606
  3. NEOPROFEN [Suspect]
     Active Substance: IBUPROFEN LYSINE
     Dosage: 2.5 MILLIGRAM
     Route: 042
     Dates: start: 20190607, end: 20190607
  4. CALCIUM GLUCONATE [Concomitant]
     Active Substance: CALCIUM GLUCONATE
     Indication: Mineral supplementation
     Dosage: UNK
     Route: 042
     Dates: start: 20190604, end: 20190607
  5. PLEAMIN P [Concomitant]
     Indication: Nutritional supplementation
     Dosage: UNK
     Route: 042
     Dates: start: 20190604, end: 20190608
  6. OTSUKA MV [Concomitant]
     Indication: Vitamin supplementation
     Dosage: UNK
     Route: 042
     Dates: start: 20190604, end: 20190608
  7. FENTANYL [Concomitant]
     Active Substance: FENTANYL
     Indication: Cerebral haemorrhage
     Dosage: UNK
     Route: 042
     Dates: start: 20190604, end: 20190607
  8. FENTANYL [Concomitant]
     Active Substance: FENTANYL
     Indication: Prophylaxis
  9. AMPICILLIN SODIUM [Concomitant]
     Active Substance: AMPICILLIN SODIUM
     Indication: Infection prophylaxis
     Dosage: UNK
     Route: 042
     Dates: start: 20190604, end: 20190608
  10. GENTAMICIN SULFATE [Concomitant]
     Active Substance: GENTAMICIN SULFATE
     Indication: Infection prophylaxis
     Dosage: UNK
     Route: 042
     Dates: start: 20190604, end: 20190605
  11. MICAFUNGIN SODIUM [Concomitant]
     Active Substance: MICAFUNGIN SODIUM
     Indication: Infection prophylaxis
     Dosage: UNK
     Route: 042
     Dates: start: 20190604, end: 20190608
  12. BIFIDOBACTERIUM LONGUM [Concomitant]
     Active Substance: BIFIDOBACTERIUM LONGUM
     Indication: Probiotic therapy
     Dosage: UNK
     Route: 050
     Dates: start: 20190604, end: 20190608

REACTIONS (2)
  - Bradycardia [Fatal]
  - Haemorrhage intracranial [Unknown]

NARRATIVE: CASE EVENT DATE: 20190606
